FAERS Safety Report 7372813-8 (Version None)
Quarter: 2011Q1

REPORT INFORMATION
  Report Type: 
  Country: None (occurrence: None)
  Receive Date: 20110324
  Receipt Date: 20110309
  Transmission Date: 20110831
  Serious: Yes (Other)
  Sender: FDA-Public Use
  Company Number: US-SPECTRUM PHARMACEUTICALS, INC.-11-Z-US-00019

PATIENT
  Age: 61 Year
  Sex: Female
  Weight: 74.83 kg

DRUGS (5)
  1. ZEVALIN [Suspect]
     Indication: NON-HODGKIN'S LYMPHOMA
     Dosage: UNK UNK, SINGLE
     Route: 042
     Dates: start: 20100601
  2. PANHYPOPIT [Concomitant]
  3. RITUXAN [Suspect]
     Dosage: 375 MG/M2, SINGLE
     Route: 042
  4. ZEVALIN [Suspect]
     Dosage: UNK, SINGLE
     Route: 042
     Dates: start: 20100601
  5. RITUXAN [Suspect]
     Dosage: 375 MG/M2, SINGLE
     Route: 042

REACTIONS (2)
  - THROMBOCYTOPENIA [None]
  - OVARIAN CANCER [None]
